FAERS Safety Report 9347863 (Version 1)
Quarter: 2013Q2

REPORT INFORMATION
  Report Type: Spontaneous
  Country: US (occurrence: US)
  Receive Date: 20130614
  Receipt Date: 20130614
  Transmission Date: 20140414
  Serious: Yes (Hospitalization, Other)
  Sender: FDA-Public Use
  Company Number: US-AMGEN-USASP2013041428

PATIENT
  Age: 53 Year
  Sex: Female

DRUGS (2)
  1. ENBREL [Suspect]
     Indication: PSORIASIS
     Dosage: 50 MG, QWK
     Route: 065
     Dates: start: 20071030
  2. PREDNISONE [Concomitant]
     Dosage: UNK

REACTIONS (8)
  - Pyrexia [Recovered/Resolved]
  - Diabetes mellitus [Not Recovered/Not Resolved]
  - Hospitalisation [Recovered/Resolved]
  - Blood glucose increased [Not Recovered/Not Resolved]
  - Infection [Recovered/Resolved]
  - Diarrhoea [Recovered/Resolved]
  - Rash [Recovered/Resolved]
  - Bronchitis [Recovered/Resolved]
